FAERS Safety Report 9016442 (Version 2)
Quarter: 2013Q1

REPORT INFORMATION
  Report Type: Report from Study
  Country: IT (occurrence: IT)
  Receive Date: 20130116
  Receipt Date: 20130124
  Transmission Date: 20140127
  Serious: Yes (Hospitalization)
  Sender: FDA-Public Use
  Company Number: IT-GLAXOSMITHKLINE-Z0010255A

PATIENT
  Age: 26 Year
  Sex: Female
  Weight: 56 kg

DRUGS (1)
  1. PAZOPANIB [Suspect]
     Indication: OVARIAN CANCER
     Route: 048
     Dates: start: 20100616

REACTIONS (2)
  - Presyncope [Recovered/Resolved]
  - Paraesthesia [Recovered/Resolved]
